FAERS Safety Report 12276420 (Version 2)
Quarter: 2016Q2

REPORT INFORMATION
  Report Type: Spontaneous
  Country: US (occurrence: US)
  Receive Date: 20160418
  Receipt Date: 20160420
  Transmission Date: 20160815
  Serious: Yes (Other)
  Sender: FDA-Public Use
  Company Number: US-NOVOPROD-487792

PATIENT
  Age: 73 Year
  Sex: Female
  Weight: 104.31 kg

DRUGS (2)
  1. VICTOZA [Suspect]
     Active Substance: LIRAGLUTIDE
     Indication: TYPE 2 DIABETES MELLITUS
     Dosage: 1.2 MG, QD
     Route: 058
     Dates: start: 2014, end: 201603
  2. VICTOZA [Suspect]
     Active Substance: LIRAGLUTIDE
     Dosage: 0.6 MG, QD
     Route: 058
     Dates: start: 20160414

REACTIONS (9)
  - Vulvovaginal pain [Recovered/Resolved]
  - Joint injury [Recovering/Resolving]
  - Fall [Recovering/Resolving]
  - Dysphagia [Recovered/Resolved]
  - Drug dose omission [Recovered/Resolved]
  - Nausea [Recovered/Resolved]
  - Sensation of foreign body [Recovered/Resolved]
  - Weight decreased [Not Recovered/Not Resolved]
  - Back pain [Recovered/Resolved]

NARRATIVE: CASE EVENT DATE: 2014
